FAERS Safety Report 7928847-5 (Version None)
Quarter: 2011Q4

REPORT INFORMATION
  Report Type: 
  Country: None (occurrence: None)
  Receive Date: 20111118
  Receipt Date: 20111114
  Transmission Date: 20120403
  Serious: Yes (Death)
  Sender: FDA-Public Use
  Company Number: US-CELGENEUS-163-21880-11043265

PATIENT
  Sex: Male
  Weight: 86.2 kg

DRUGS (13)
  1. ZOMETA [Concomitant]
     Route: 065
  2. LEVOTHYROXINE SODIUM [Concomitant]
     Route: 065
  3. VITAMIN TAB [Concomitant]
     Route: 065
  4. AVODART [Concomitant]
     Dosage: .5 MILLIGRAM
     Route: 065
  5. FLOMAX [Concomitant]
     Dosage: .4 MILLIGRAM
     Route: 065
  6. ASPIRIN [Concomitant]
     Route: 065
  7. DEXAMETHASONE [Concomitant]
     Route: 065
  8. GABAPENTIN [Concomitant]
     Indication: BREAKTHROUGH PAIN
     Dosage: 300 MILLIGRAM
     Route: 065
  9. MS CONTIN [Concomitant]
     Indication: BREAKTHROUGH PAIN
     Dosage: 15 MILLIGRAM
     Route: 065
  10. REVLIMID [Suspect]
     Indication: MULTIPLE MYELOMA
     Dosage: 10 MILLIGRAM
     Route: 048
     Dates: start: 20110201
  11. LASIX [Concomitant]
     Dosage: 40 MILLIGRAM
     Route: 065
  12. DILAUDID [Concomitant]
     Indication: BREAKTHROUGH PAIN
     Route: 065
  13. MECLIZINE [Concomitant]
     Dosage: 25 MILLIGRAM
     Route: 065

REACTIONS (1)
  - MULTIPLE MYELOMA [None]
